FAERS Safety Report 23766927 (Version 3)
Quarter: 2024Q2

REPORT INFORMATION
  Report Type: Report from Study
  Country: US (occurrence: US)
  Receive Date: 20240422
  Receipt Date: 20240525
  Transmission Date: 20240715
  Serious: Yes (Hospitalization, Other)
  Sender: FDA-Public Use
  Company Number: US-UCBSA-2022057619

PATIENT
  Age: 2 Year
  Sex: Male

DRUGS (7)
  1. FINTEPLA [Suspect]
     Active Substance: FENFLURAMINE
     Indication: Severe myoclonic epilepsy of infancy
     Dosage: 0.6 MILLILITER, 2X/DAY (BID)
     Dates: start: 20220909
  2. FINTEPLA [Suspect]
     Active Substance: FENFLURAMINE
     Dosage: 1.2 MILLILITER, 2X/DAY (BID)
  3. FINTEPLA [Suspect]
     Active Substance: FENFLURAMINE
     Dosage: 2.5 MILLILITER, 2X/DAY (BID)
  4. FINTEPLA [Suspect]
     Active Substance: FENFLURAMINE
     Dosage: 2.5 MILLILITER, 2X/DAY (BID)
  5. FINTEPLA [Suspect]
     Active Substance: FENFLURAMINE
     Dosage: 2.5 MILLILITER, 2X/DAY (BID)
  6. ONFI [Concomitant]
     Active Substance: CLOBAZAM
     Indication: Epilepsy
     Dosage: UNK
  7. TOPIRAMATE [Concomitant]
     Active Substance: TOPIRAMATE
     Indication: Epilepsy
     Dosage: UNK

REACTIONS (6)
  - Herpes simplex [Recovered/Resolved]
  - Dehydration [Recovered/Resolved]
  - Feeding disorder [Recovered/Resolved]
  - Generalised tonic-clonic seizure [Not Recovered/Not Resolved]
  - Myoclonic epilepsy [Not Recovered/Not Resolved]
  - Sleep disorder [Not Recovered/Not Resolved]

NARRATIVE: CASE EVENT DATE: 20220916
